FAERS Safety Report 6972010-1 (Version None)
Quarter: 2010Q3

REPORT INFORMATION
  Report Type: 
  Country: None (occurrence: None)
  Receive Date: 20100908
  Receipt Date: 20100908
  Transmission Date: 20110219
  Serious: Yes (Life-Threatening)
  Sender: FDA-Public Use
  Company Number: None

PATIENT
  Age: 70 Year
  Sex: Male
  Weight: 77.1115 kg

DRUGS (1)
  1. TYLENOL W/ CODEINE NO. 3 [Suspect]
     Indication: PAIN
     Dosage: 1 TAB 4 PM MOUTH ;1 TAB 10 PM MOUTH
     Route: 048
     Dates: start: 20100817

REACTIONS (4)
  - ANAPHYLACTIC REACTION [None]
  - DRUG HYPERSENSITIVITY [None]
  - INSOMNIA [None]
  - SYNCOPE [None]
